FAERS Safety Report 5717480-1 (Version None)
Quarter: 2008Q2

REPORT INFORMATION
  Report Type: 
  Country: None (occurrence: None)
  Receive Date: 20080425
  Receipt Date: 20080417
  Transmission Date: 20081010
  Serious: Yes (Hospitalization)
  Sender: FDA-Public Use
  Company Number: EE-BAYER-200816713GPV

PATIENT
  Age: 68 Year
  Sex: Female
  Weight: 55 kg

DRUGS (12)
  1. FLUDARA [Suspect]
     Indication: CHRONIC LYMPHOCYTIC LEUKAEMIA
     Route: 042
     Dates: start: 20070424
  2. FLUDARA [Suspect]
     Route: 042
     Dates: start: 20070523, end: 20070525
  3. CYCLOPHOSPHAMIDE [Suspect]
     Indication: CHRONIC LYMPHOCYTIC LEUKAEMIA
     Route: 042
     Dates: start: 20070424, end: 20070426
  4. RED BLOOD THERAPY [Concomitant]
     Dates: start: 20070413, end: 20070413
  5. DEXAMETHASONE TAB [Concomitant]
     Indication: PROPHYLAXIS
     Route: 042
     Dates: start: 20070424, end: 20070426
  6. DEXAMETHASONE TAB [Concomitant]
     Route: 042
     Dates: start: 20070413, end: 20070413
  7. CIPROFLOXACIN [Concomitant]
     Route: 048
     Dates: start: 20070413, end: 20070418
  8. METOPROLOL TARTRATE [Concomitant]
     Route: 048
     Dates: start: 20040101
  9. OMEPRAZOLE [Concomitant]
     Route: 048
     Dates: start: 20060101
  10. VITAMINE B12 [Concomitant]
     Route: 030
     Dates: start: 20070419, end: 20070424
  11. ONDANSETRON [Concomitant]
     Indication: PROPHYLAXIS
     Route: 042
     Dates: start: 20070424, end: 20070426
  12. LASIX [Concomitant]
     Indication: PROPHYLAXIS
     Route: 042
     Dates: start: 20070424, end: 20070426

REACTIONS (2)
  - ASTHENIA [None]
  - SYNCOPE [None]
